FAERS Safety Report 7810696-X (Version None)
Quarter: 2011Q4

REPORT INFORMATION
  Report Type: 
  Country: None (occurrence: None)
  Receive Date: 20111013
  Receipt Date: 20111007
  Transmission Date: 20120403
  Serious: Yes (Hospitalization, Other)
  Sender: FDA-Public Use
  Company Number: DE-BRISTOL-MYERS SQUIBB COMPANY-15589476

PATIENT
  Age: 68 Year
  Sex: Male
  Weight: 104 kg

DRUGS (8)
  1. FLUOROURACIL [Concomitant]
     Indication: COLORECTAL CANCER
     Dosage: 400MG/M2 ON DAY 1,2400MG/M2 ON 1 AND 2,CONTINUOUS INFUSION OVER 22-24 HR,28MAR11 1400MG/M2
     Route: 040
     Dates: start: 20101129
  2. ANTIHISTAMINE DRUGS [Concomitant]
     Indication: PREMEDICATION
     Dosage: AGAIN ON 13DEC10
     Dates: start: 20101129
  3. ERBITUX [Suspect]
     Indication: COLORECTAL CANCER
     Dosage: INFUSION INTERRUPTED ON 24JAN11 RESTARTED ON 28MAR11
     Route: 042
     Dates: start: 20101129
  4. IRINOTECAN HCL [Concomitant]
     Indication: COLORECTAL CANCER
     Dosage: 28MAR11 90MG/M2
     Route: 042
     Dates: start: 20101129
  5. BUTYLSCOPOLAMINE [Concomitant]
     Indication: PREMEDICATION
     Dosage: AGAIN 0N 13DEC10
     Dates: start: 20101129
  6. LEUCOVORIN CALCIUM [Concomitant]
     Indication: COLORECTAL CANCER
     Dosage: 28MAR11 200MG/M2
     Route: 042
     Dates: start: 20101129
  7. CORTICOSTEROID [Concomitant]
     Indication: PREMEDICATION
     Dosage: AGAIN ON 13DEC10 1 IN 2WK
     Route: 048
     Dates: start: 20101129
  8. ONDANSETRON [Concomitant]
     Indication: PREMEDICATION
     Dosage: AGAIN ON 13DEC10
     Dates: start: 20101129

REACTIONS (1)
  - ENTERITIS [None]
